FAERS Safety Report 5984357-6 (Version None)
Quarter: 2008Q4

REPORT INFORMATION
  Report Type: 
  Country: None (occurrence: None)
  Receive Date: 20081205
  Receipt Date: 20081205
  Transmission Date: 20090506
  Serious: Yes (Other)
  Sender: FDA-Public Use
  Company Number: None

PATIENT
  Age: 88 Year
  Sex: Female

DRUGS (4)
  1. ADVAIR DISKUS 500/50 [Suspect]
     Dosage: INHALATION
     Route: 055
     Dates: start: 20030101, end: 20060101
  2. WALGREENS BRAND SALINE NASAL SPRAY [Concomitant]
  3. OXYGEN [Concomitant]
  4. XOPENEX HFA [Concomitant]

REACTIONS (3)
  - APTYALISM [None]
  - DENTAL CARIES [None]
  - DRY MOUTH [None]
